FAERS Safety Report 20493236 (Version 1)
Quarter: 2022Q1

REPORT INFORMATION
  Report Type: Spontaneous
  Country: CH (occurrence: CH)
  Receive Date: 20220220
  Receipt Date: 20220220
  Transmission Date: 20220423
  Serious: Yes (Life-Threatening, Hospitalization, Other)
  Sender: FDA-Public Use
  Company Number: None

PATIENT
  Age: 81 Year
  Sex: Female

DRUGS (11)
  1. IBUPROFEN [Suspect]
     Active Substance: IBUPROFEN
     Dosage: 1200 MILLIGRAM DAILY; 400 MG, ADDITIONAL INFO: ; ROUTE:048IRFEN  (IBUPROFEN) 400MG 1-1-1-0 S...
     Route: 048
     Dates: start: 20210628, end: 20210629
  2. QUETIAPINE FUMARATE [Suspect]
     Active Substance: QUETIAPINE FUMARATE
     Indication: Depression
     Dosage: 200 MG, ADDITIONAL INFO:; ROUTE:048, SEQUASE  (QUETIAPINE) 200 MG / DAY ORAL INTAKE FROM 06/08/2021
     Route: 048
     Dates: start: 20210608, end: 20210629
  3. PANTOPRAZOLE SODIUM [Suspect]
     Active Substance: PANTOPRAZOLE SODIUM
     Dosage: 20 MG, INGREDIENT (PANTOPRAZOLE SODIUM SESQUIHYDRATE): 20MG; ADDITIONAL INFO: ; ROUTE:048PANTOPRAZOL
     Route: 048
     Dates: start: 20210317, end: 20210629
  4. PIPERACILLIN AND TAZOBACTAM [Suspect]
     Active Substance: PIPERACILLIN SODIUM\TAZOBACTAM SODIUM
     Dosage: 4.5 GRAM, ADDITIONAL INFO:; ROUTE:042PIPERACILLIN/TAZOBACTAM SANDOZ  (PIPERACILLIN/TAZOBACTAM) 4.5 G
     Route: 042
     Dates: start: 20210629, end: 20210704
  5. LITHIUM [Suspect]
     Active Substance: LITHIUM
     Indication: Depression
     Dosage: 18.3 MILLIMOL, ADDITIONAL INFO; ROUTE:048QUILONORM  (LITHUM) RETARD 12.2MMOL 1.5 TABLET/T...
     Route: 048
     Dates: start: 20210623, end: 20210705
  6. LITHIUM [Suspect]
     Active Substance: LITHIUM
     Indication: Depression
     Dosage: 6.1 MILLIMOL
     Route: 048
     Dates: start: 20210712
  7. VENLAFAXINE HYDROCHLORIDE [Concomitant]
     Active Substance: VENLAFAXINE HYDROCHLORIDE
     Dosage: 225 MG, ADDITIONAL INFORMATION: ; ROUTE:048 ; ROUTE:048 CO-MEDICATION: AT THE TIME OF THE SUSPECTED
     Route: 048
     Dates: start: 20210423, end: 20210629
  8. VENLAFAXINE HYDROCHLORIDE [Concomitant]
     Active Substance: VENLAFAXINE HYDROCHLORIDE
     Dosage: 225 MG
     Route: 048
     Dates: start: 20210707
  9. Temesta [Concomitant]
     Dosage: 0.5 MG, INGREDIENT (LORAZEPAM): 1MG; ADDITIONAL INFORMATION: ; ROUTE:048 ; ROUTE:048CO-MEDICATION: C
     Route: 048
     Dates: start: 20210518, end: 20210629
  10. Temesta [Concomitant]
     Dosage: 1 DF
     Route: 048
     Dates: start: 20210630
  11. NEBIVOLOL [Concomitant]
     Active Substance: NEBIVOLOL
     Dosage: 5 MG, INGREDIENT (NEBIVOLOL HYDROCHLORIDE): 5MG; ADDITIONAL INFORMATION: ; ROUTE:048CO-MEDICATION: C
     Route: 048
     Dates: start: 20210401

REACTIONS (10)
  - Agranulocytosis [Recovered/Resolved]
  - Febrile neutropenia [Recovered/Resolved]
  - Sepsis [Recovered/Resolved]
  - Drug-induced liver injury [Recovering/Resolving]
  - Poisoning [Recovered/Resolved]
  - Apathy [Recovered/Resolved]
  - Muscle rigidity [Recovered/Resolved]
  - Muscle contractions involuntary [Recovered/Resolved]
  - Tremor [Recovered/Resolved]
  - Hyperreflexia [Recovered/Resolved]

NARRATIVE: CASE EVENT DATE: 20210629
